FAERS Safety Report 10370979 (Version 1)
Quarter: 2014Q3

REPORT INFORMATION
  Report Type: Spontaneous
  Country: DE (occurrence: DE)
  Receive Date: 20140808
  Receipt Date: 20140808
  Transmission Date: 20150326
  Serious: Yes (Life-Threatening, Hospitalization)
  Sender: FDA-Public Use
  Company Number: DE-TEVA-498282GER

PATIENT
  Age: 6 Year
  Sex: Female
  Weight: 21 kg

DRUGS (1)
  1. CEFACLOR. [Suspect]
     Active Substance: CEFACLOR
     Indication: URINARY TRACT INFECTION
     Dosage: 750 MILLIGRAM DAILY;
     Route: 048
     Dates: start: 20140715

REACTIONS (5)
  - Respiratory failure [Recovering/Resolving]
  - Loss of consciousness [Recovering/Resolving]
  - Circulatory collapse [Recovering/Resolving]
  - Hypotension [Recovering/Resolving]
  - Anaphylactic reaction [Recovering/Resolving]

NARRATIVE: CASE EVENT DATE: 20140715
